FAERS Safety Report 7647420-X (Version None)
Quarter: 2011Q3

REPORT INFORMATION
  Report Type: 
  Country: None (occurrence: None)
  Receive Date: 20110801
  Receipt Date: 20110720
  Transmission Date: 20111222
  Serious: Yes (Hospitalization, Other)
  Sender: FDA-Public Use
  Company Number: DE-ELI_LILLY_AND_COMPANY-DE201107005143

PATIENT
  Sex: Male

DRUGS (9)
  1. BYETTA [Suspect]
     Indication: TYPE 2 DIABETES MELLITUS
     Dosage: 5 UG, QD
     Route: 058
     Dates: start: 20110628, end: 20110704
  2. ASPIRIN [Concomitant]
     Dosage: 100 MG, QD
     Route: 048
  3. METOPROLOL TARTRATE [Concomitant]
     Dosage: 100 MG, BID
     Route: 048
  4. AMLODIPINE BESYLATE [Concomitant]
     Dosage: 10 MG, QD
     Route: 048
  5. GLIMEPIRID [Concomitant]
     Dosage: 1 MG, QD
     Route: 048
     Dates: start: 20110701
  6. METHIZOL [Concomitant]
     Dosage: 5 MG, QD
     Route: 048
  7. METFORMIN HCL [Concomitant]
     Dosage: 1 DF, TID
     Route: 048
     Dates: end: 20110630
  8. MICARDIS [Concomitant]
     Dosage: 80 MG, QD
     Route: 048
  9. CERTOPARIN SODIUM [Concomitant]
     Dosage: 2000 U, QD
     Route: 058

REACTIONS (2)
  - PANCREATITIS [None]
  - LIPASE INCREASED [None]
